FAERS Safety Report 6643902-8 (Version None)
Quarter: 2010Q1

REPORT INFORMATION
  Report Type: 
  Country: None (occurrence: None)
  Receive Date: 20100322
  Receipt Date: 20100318
  Transmission Date: 20100710
  Serious: Yes (Hospitalization, Other)
  Sender: FDA-Public Use
  Company Number: CA-ABBOTT-10P-028-0631126-00

PATIENT
  Sex: Male
  Weight: 89.892 kg

DRUGS (19)
  1. HUMIRA [Suspect]
     Indication: CROHN'S DISEASE
     Route: 058
     Dates: start: 20071220
  2. IMURAN [Concomitant]
     Indication: DRUG USE FOR UNKNOWN INDICATION
  3. INDOMETHACIN [Concomitant]
     Indication: DRUG USE FOR UNKNOWN INDICATION
     Dosage: PRN
  4. ELAVIL [Concomitant]
     Indication: DRUG USE FOR UNKNOWN INDICATION
     Dosage: AT HOUR OF SLEEP
  5. NEXIUM [Concomitant]
     Indication: DRUG USE FOR UNKNOWN INDICATION
  6. ARTHROTEC [Concomitant]
     Indication: DRUG USE FOR UNKNOWN INDICATION
  7. TYLENOL-500 [Concomitant]
     Indication: DRUG USE FOR UNKNOWN INDICATION
     Dosage: 1 - 2 TABLETS EVERY 4-6 HRS AS NEEDED
  8. IMODIUM [Concomitant]
     Indication: DRUG USE FOR UNKNOWN INDICATION
     Dosage: AS NEEDED
  9. ENSURE [Concomitant]
     Indication: SUPPLEMENTATION THERAPY
     Dosage: AS NEEDED
  10. METACLOP [Concomitant]
     Indication: DRUG USE FOR UNKNOWN INDICATION
  11. MULTI-VITAMIN [Concomitant]
     Indication: DRUG USE FOR UNKNOWN INDICATION
     Dosage: 3 PER DAY
  12. BLUEBERRY ANTIOXIDANT [Concomitant]
     Indication: DRUG USE FOR UNKNOWN INDICATION
  13. DIGESTIVE ENZYMES [Concomitant]
     Indication: DRUG USE FOR UNKNOWN INDICATION
  14. VIT C [Concomitant]
     Indication: DRUG USE FOR UNKNOWN INDICATION
  15. VIT B [Concomitant]
     Indication: DRUG USE FOR UNKNOWN INDICATION
  16. VIT B50 COMPLEX [Concomitant]
     Indication: DRUG USE FOR UNKNOWN INDICATION
  17. LOVAZA [Concomitant]
     Indication: DRUG USE FOR UNKNOWN INDICATION
  18. CALCIUM W/MAGNESIUM [Concomitant]
     Indication: DRUG USE FOR UNKNOWN INDICATION
  19. VIT D [Concomitant]
     Indication: DRUG USE FOR UNKNOWN INDICATION

REACTIONS (3)
  - INCISION SITE INFECTION [None]
  - INTESTINAL OBSTRUCTION [None]
  - PYREXIA [None]
